FAERS Safety Report 7605411-9 (Version None)
Quarter: 2011Q3

REPORT INFORMATION
  Report Type: 
  Country: None (occurrence: None)
  Receive Date: 20110712
  Receipt Date: 20110712
  Transmission Date: 20111222
  Serious: Yes (Hospitalization)
  Sender: FDA-Public Use
  Company Number: None

PATIENT
  Age: 70 Year
  Sex: Male
  Weight: 103.1 kg

DRUGS (1)
  1. OXYBUTYNIN [Suspect]
     Dates: start: 20110314

REACTIONS (3)
  - DYSURIA [None]
  - DIZZINESS [None]
  - MALAISE [None]
